FAERS Safety Report 4399765-7 (Version None)
Quarter: 2004Q3

REPORT INFORMATION
  Report Type: 
  Country: None (occurrence: None)
  Receive Date: 20040714
  Receipt Date: 20040701
  Transmission Date: 20050211
  Serious: Yes (Hospitalization)
  Sender: FDA-Public Use
  Company Number: 03P-062-0236111-00

PATIENT
  Age: 50 Year
  Sex: Female
  Weight: 85 kg

DRUGS (11)
  1. HUMIRA [Suspect]
     Indication: RHEUMATOID ARTHRITIS
     Dosage: 1 IN 2 WK, SUBCUTANEOUS
     Route: 058
     Dates: start: 20030616
  2. LANTAREL/METHOTREXATE [Concomitant]
  3. CO-DIOVAN [Concomitant]
  4. LEKOVIT CA [Concomitant]
  5. PANTOPRAZOLE SODIUM [Concomitant]
  6. ROFECOXIB [Concomitant]
  7. LEVOTHYROXINE SODIUM [Concomitant]
  8. HYOSCINE HBR HYT [Concomitant]
  9. PREDNISOLONE [Concomitant]
  10. CHLORTETRACYCLINE [Concomitant]
  11. PREDNISOLONE [Concomitant]

REACTIONS (3)
  - GLOMERULONEPHRITIS MEMBRANOUS [None]
  - NEPHROSCLEROSIS [None]
  - PROTEINURIA [None]
